FAERS Safety Report 8538122-6 (Version None)
Quarter: 2012Q3

REPORT INFORMATION
  Report Type: 
  Country: None (occurrence: None)
  Receive Date: 20120725
  Receipt Date: 20110930
  Transmission Date: 20120928
  Serious: Yes (Other)
  Sender: FDA-Public Use
  Company Number: PHHY2011BE117055

PATIENT
  Sex: Female

DRUGS (1)
  1. EXTAVIA [Suspect]
     Indication: MULTIPLE SCLEROSIS
     Dates: start: 20110211

REACTIONS (4)
  - SENSORY DISTURBANCE [None]
  - INJECTION SITE PAIN [None]
  - OPHTHALMOPLEGIA [None]
  - FEELING HOT [None]
